FAERS Safety Report 8589456-0 (Version None)
Quarter: 2012Q3

REPORT INFORMATION
  Report Type: 
  Country: None (occurrence: None)
  Receive Date: 20120813
  Receipt Date: 20120808
  Transmission Date: 20120928
  Serious: Yes (Life-Threatening, Hospitalization)
  Sender: FDA-Public Use
  Company Number: AT-ASTRAZENECA-2012SE56030

PATIENT
  Age: 66 Year
  Sex: Male
  Weight: 82 kg

DRUGS (3)
  1. MOVIPREP [Suspect]
     Indication: BOWEL PREPARATION
     Dosage: 2 APPLICATIONS
     Dates: start: 20120719, end: 20120719
  2. ACECOMB [Suspect]
     Indication: CARDIAC FAILURE
     Route: 048
  3. LISINOPRIL [Suspect]
     Indication: CARDIAC FAILURE
     Route: 048

REACTIONS (2)
  - DELIRIUM [None]
  - OFF LABEL USE [None]
